FAERS Safety Report 26190861 (Version 2)
Quarter: 2025Q4

REPORT INFORMATION
  Report Type: Spontaneous
  Country: US (occurrence: US)
  Receive Date: 20251223
  Receipt Date: 20251230
  Transmission Date: 20260118
  Serious: No
  Sender: KARYOPHARM THERAPEUTICS
  Company Number: US-KARYOPHARM-2025KPT101086

PATIENT

DRUGS (6)
  1. SELINEXOR [Suspect]
     Active Substance: SELINEXOR
     Indication: Brain neoplasm malignant
     Dosage: 80 MG WEEKLY
     Route: 048
     Dates: start: 20251211
  2. AMLODIPINE [Concomitant]
     Active Substance: AMLODIPINE BESYLATE
  3. DEXAMETHASONE [Concomitant]
     Active Substance: DEXAMETHASONE
  4. KEPPRA [Concomitant]
     Active Substance: LEVETIRACETAM
  5. EMEND [Concomitant]
     Active Substance: APREPITANT
  6. ZYPREXA [Concomitant]
     Active Substance: OLANZAPINE

REACTIONS (4)
  - Depression [Unknown]
  - Nausea [Unknown]
  - Vomiting [Unknown]
  - Off label use [Unknown]

NARRATIVE: CASE EVENT DATE: 20251201
